FAERS Safety Report 6032691-6 (Version None)
Quarter: 2009Q1

REPORT INFORMATION
  Report Type: 
  Country: None (occurrence: None)
  Receive Date: 20090109
  Receipt Date: 20090105
  Transmission Date: 20090719
  Serious: Yes (Death, Hospitalization)
  Sender: FDA-Public Use
  Company Number: JP-NOVOPROD-282842

PATIENT
  Age: 87 Year
  Sex: Male
  Weight: 50 kg

DRUGS (13)
  1. NOVOSEVEN [Suspect]
     Indication: ACQUIRED HAEMOPHILIA
     Dosage: 4.8 MG, UNK
     Route: 042
     Dates: start: 20081212, end: 20081226
  2. NOVOSEVEN [Suspect]
     Indication: HAEMORRHAGE
     Dosage: 4.8 MG, UNK
     Route: 042
     Dates: start: 20081212, end: 20081226
  3. NOVOSEVEN [Suspect]
     Dosage: 4.8 MG, UNK
     Route: 042
     Dates: start: 20081212, end: 20081226
  4. NOVOSEVEN [Suspect]
     Dosage: 4.8 MG, UNK
     Route: 042
     Dates: start: 20081212, end: 20081226
  5. NOVOSEVEN [Suspect]
     Dosage: 4.8 MG, UNK
     Route: 042
     Dates: start: 20081212, end: 20081226
  6. NOVOSEVEN [Suspect]
     Dosage: 4.8 MG, UNK
     Route: 042
     Dates: start: 20081212, end: 20081226
  7. NOVOSEVEN [Suspect]
     Dosage: 4.8 MG, UNK
     Route: 042
     Dates: start: 20081212, end: 20081226
  8. NOVOSEVEN [Suspect]
     Dosage: 4.8 MG, UNK
     Route: 042
     Dates: start: 20081212, end: 20081226
  9. NOVOSEVEN [Suspect]
     Dosage: 4.8 MG, UNK
     Route: 042
     Dates: start: 20081212, end: 20081226
  10. NOVOSEVEN [Suspect]
     Dosage: 4.8 MG, UNK
     Route: 042
     Dates: start: 20081212, end: 20081226
  11. FEIBA                              /01034301/ [Concomitant]
     Dosage: 2 VIAL
     Route: 042
     Dates: start: 20081226, end: 20081227
  12. ENDOXAN                            /00021101/ [Concomitant]
     Dosage: 500 MG, UNK
     Route: 042
     Dates: start: 20081215, end: 20081215
  13. PREDNISOLONE [Concomitant]
     Dosage: 1 MG, UNK
     Route: 048
     Dates: start: 20081212, end: 20081227

REACTIONS (2)
  - DRUG INEFFECTIVE [None]
  - HAEMORRHAGE [None]
